FAERS Safety Report 11133453 (Version 2)
Quarter: 2015Q2

REPORT INFORMATION
  Report Type: Spontaneous
  Country: US (occurrence: US)
  Receive Date: 20150522
  Receipt Date: 20150611
  Transmission Date: 20150821
  Serious: Yes (Hospitalization)
  Sender: FDA-Public Use
  Company Number: US-009507513-1505USA005181

PATIENT
  Age: 72 Year
  Sex: Male

DRUGS (1)
  1. CUBICIN [Suspect]
     Active Substance: DAPTOMYCIN
     Indication: URINARY TRACT INFECTION
     Dosage: UNK
     Route: 042

REACTIONS (1)
  - Eosinophilic pneumonia acute [Recovering/Resolving]
